FAERS Safety Report 21747190 (Version 1)
Quarter: 2022Q4

REPORT INFORMATION
  Report Type: Spontaneous
  Country: JP (occurrence: JP)
  Receive Date: 20221219
  Receipt Date: 20221219
  Transmission Date: 20230113
  Serious: Yes (Hospitalization, Other)
  Sender: FDA-Public Use
  Company Number: JP-BRISTOL-MYERS SQUIBB COMPANY-2022-153589

PATIENT
  Sex: Female

DRUGS (2)
  1. ELIQUIS [Suspect]
     Active Substance: APIXABAN
     Indication: Cerebrovascular accident prophylaxis
     Route: 048
  2. EDOXABAN TOSYLATE [Suspect]
     Active Substance: EDOXABAN TOSYLATE
     Indication: Atrial fibrillation

REACTIONS (16)
  - Haemorrhage [Unknown]
  - Pulmonary embolism [Unknown]
  - Loss of consciousness [Unknown]
  - Off label use [Unknown]
  - Gingival bleeding [Unknown]
  - Injection site haemorrhage [Unknown]
  - Constipation [Unknown]
  - Haematochezia [Unknown]
  - Urine output decreased [Unknown]
  - Face oedema [Unknown]
  - Periorbital swelling [Unknown]
  - Fall [Unknown]
  - Pallor [Unknown]
  - Dizziness [Unknown]
  - Haemorrhage subcutaneous [Unknown]
  - Haematuria [Unknown]
